FAERS Safety Report 10055637 (Version 1)
Quarter: 2014Q2

REPORT INFORMATION
  Report Type: Spontaneous
  Country: CA (occurrence: CA)
  Receive Date: 20140403
  Receipt Date: 20140403
  Transmission Date: 20141212
  Serious: Yes (Other)
  Sender: FDA-Public Use
  Company Number: CA-ROCHE-1373224

PATIENT
  Age: 52 Year
  Sex: Female

DRUGS (3)
  1. HERCEPTIN [Suspect]
     Indication: BREAST CANCER
     Route: 042
     Dates: start: 20110105, end: 20120201
  2. SYNTHROID [Concomitant]
  3. KEPPRA [Concomitant]

REACTIONS (1)
  - Metastases to central nervous system [Not Recovered/Not Resolved]
